FAERS Safety Report 7132749-4 (Version None)
Quarter: 2010Q4

REPORT INFORMATION
  Report Type: 
  Country: None (occurrence: None)
  Receive Date: 20101202
  Receipt Date: 20101120
  Transmission Date: 20110411
  Serious: Yes (Other)
  Sender: FDA-Public Use
  Company Number: US-JNJFOC-20101109020

PATIENT
  Sex: Female

DRUGS (2)
  1. TYLENOL (CAPLET) [Suspect]
     Indication: STENT PLACEMENT
     Dosage: REPORTED AS ^200 MG^
     Route: 048
  2. TYLENOL (CAPLET) [Suspect]
     Indication: ARTERIAL GRAFT
     Dosage: REPORTED AS ^200 MG^
     Route: 048

REACTIONS (1)
  - BLOOD PRESSURE INCREASED [None]
